FAERS Safety Report 9216634 (Version 2)
Quarter: 2013Q2

REPORT INFORMATION
  Report Type: Spontaneous
  Country: CN (occurrence: None)
  Receive Date: 20130220
  Receipt Date: 20130516
  Transmission Date: 20140414
  Serious: Yes (Hospitalization)
  Sender: FDA-Public Use
  Company Number: SYM-2013-00485

PATIENT
  Age: 60 Year
  Sex: Male

DRUGS (4)
  1. 5-FU [Suspect]
     Indication: COLORECTAL CANCER
     Route: 040
     Dates: start: 20130108, end: 20130108
  2. BLINDED THERAPY [Suspect]
     Indication: COLORECTAL CANCER
     Route: 042
     Dates: start: 20130108, end: 20130108
  3. IRINOTECAN [Suspect]
     Indication: COLORECTAL CANCER
     Route: 042
     Dates: start: 20130108, end: 20130108
  4. LEUCOVORIN [Suspect]
     Indication: COLORECTAL CANCER
     Route: 042
     Dates: start: 20130108, end: 20130108

REACTIONS (4)
  - Back pain [None]
  - Diarrhoea [None]
  - Bone pain [None]
  - Metastases to lung [None]
